FAERS Safety Report 12508580 (Version 3)
Quarter: 2016Q3

REPORT INFORMATION
  Report Type: Spontaneous
  Country: US (occurrence: US)
  Receive Date: 20160629
  Receipt Date: 20160801
  Transmission Date: 20161109
  Serious: No
  Sender: FDA-Public Use
  Company Number: US-BAYER-2016-121883

PATIENT
  Age: 58 Year
  Sex: Female

DRUGS (1)
  1. CLIMARA [Suspect]
     Active Substance: ESTRADIOL
     Dosage: 0.025 MG, UNK
     Route: 062
     Dates: start: 2013

REACTIONS (3)
  - Vision blurred [Recovered/Resolved]
  - Product colour issue [None]
  - Adverse drug reaction [None]

NARRATIVE: CASE EVENT DATE: 201606
